FAERS Safety Report 7371075-5 (Version None)
Quarter: 2011Q1

REPORT INFORMATION
  Report Type: 
  Country: None (occurrence: None)
  Receive Date: 20110324
  Receipt Date: 20110317
  Transmission Date: 20110831
  Serious: Yes (Hospitalization)
  Sender: FDA-Public Use
  Company Number: PHHY2011DE12015

PATIENT
  Sex: Male
  Weight: 84 kg

DRUGS (5)
  1. INTERFERON BETA-1B [Suspect]
     Indication: MULTIPLE SCLEROSIS
     Dosage: 0.25 ML, UNK
     Route: 058
     Dates: start: 20110125, end: 20110203
  2. PHENYTOIN [Suspect]
     Indication: MULTIPLE SCLEROSIS
     Dosage: 100 MG, UNK
     Route: 048
     Dates: start: 20110101, end: 20110215
  3. INTERFERON BETA-1B [Suspect]
     Dosage: 0.25 ML, UNK
     Route: 058
     Dates: end: 20101201
  4. LYRICA [Concomitant]
     Indication: MULTIPLE SCLEROSIS
     Dosage: 150 MG, UNK
     Dates: start: 20110101, end: 20110215
  5. BACLOFEN [Concomitant]
     Indication: PAIN
     Dosage: 125 MG, UNK
     Route: 048
     Dates: start: 20110101

REACTIONS (6)
  - LIP ULCERATION [None]
  - STEVENS-JOHNSON SYNDROME [None]
  - OCULAR HYPERAEMIA [None]
  - CHEILITIS [None]
  - RASH [None]
  - ERYTHEMA [None]
